FAERS Safety Report 7796329-X (Version None)
Quarter: 2011Q4

REPORT INFORMATION
  Report Type: 
  Country: None (occurrence: None)
  Receive Date: 20111005
  Receipt Date: 20110926
  Transmission Date: 20120403
  Serious: Yes (Death)
  Sender: FDA-Public Use
  Company Number: CH-BIOGENIDEC-2011BI033708

PATIENT
  Age: 33 Year
  Sex: Female

DRUGS (5)
  1. TYSABRI [Suspect]
     Indication: RELAPSING-REMITTING MULTIPLE SCLEROSIS
     Dates: start: 20071004, end: 20110616
  2. DEANXIT [Concomitant]
     Indication: DEPRESSION
     Dates: start: 20060101
  3. LORAZEPAM [Concomitant]
  4. OMEPRAZOLE [Concomitant]
  5. LAMICTAL [Concomitant]

REACTIONS (1)
  - COMPLETED SUICIDE [None]
